FAERS Safety Report 4611571-4 (Version None)
Quarter: 2005Q1

REPORT INFORMATION
  Report Type: 
  Country: None (occurrence: None)
  Receive Date: 20050316
  Receipt Date: 20050316
  Transmission Date: 20050727
  Serious: Yes (Hospitalization)
  Sender: FDA-Public Use
  Company Number: None

PATIENT
  Sex: Female
  Weight: 91.6266 kg

DRUGS (17)
  1. CARBOPLATIN [Suspect]
     Indication: METASTASES TO CENTRAL NERVOUS SYSTEM
     Dosage: 390 MG X 2 DYS PER MONTH; IV
     Route: 042
     Dates: start: 20041214, end: 20050216
  2. TEMOZOLOMIDE [Suspect]
     Indication: METASTASES TO CENTRAL NERVOUS SYSTEM
     Dosage: 290 MG X 5 DAYS PER MONTH; PO
     Route: 048
     Dates: start: 20041214, end: 20050219
  3. TYLENOL (CAPLET) [Concomitant]
  4. DECADRON [Concomitant]
  5. DEPAKOTE [Concomitant]
  6. COLACE [Concomitant]
  7. PEPCID [Concomitant]
  8. OXYCODONE [Concomitant]
  9. PAXIL [Concomitant]
  10. POTASSIUM CHLORIDE [Concomitant]
  11. BACTRIM [Concomitant]
  12. TRAVATAN [Concomitant]
  13. LORAZEPAM [Concomitant]
  14. MULTI-VITAMIN [Concomitant]
  15. ZOMETA [Concomitant]
  16. HERCEPTIN [Concomitant]
  17. DETROL [Concomitant]

REACTIONS (3)
  - ANAEMIA [None]
  - DEPRESSION [None]
  - HYPERTENSION [None]
